FAERS Safety Report 23085349 (Version 1)
Quarter: 2023Q4

REPORT INFORMATION
  Report Type: Spontaneous
  Country: US (occurrence: US)
  Receive Date: 20231019
  Receipt Date: 20231019
  Transmission Date: 20240109
  Serious: Yes (Hospitalization)
  Sender: FDA-Public Use
  Company Number: US-BEH-2023164494

PATIENT
  Sex: Female

DRUGS (2)
  1. PRIVIGEN [Suspect]
     Active Substance: HUMAN IMMUNOGLOBULIN G
     Indication: Systemic lupus erythematosus
     Dosage: 20 GRAM, QW
     Route: 042
     Dates: start: 202308
  2. PRIVIGEN [Suspect]
     Active Substance: HUMAN IMMUNOGLOBULIN G
     Indication: Riley-Day syndrome

REACTIONS (6)
  - Urinary tract infection [Unknown]
  - Nephrolithiasis [Unknown]
  - No adverse event [Unknown]
  - Off label use [Unknown]
  - No adverse event [Unknown]
  - Therapy interrupted [Unknown]
